FAERS Safety Report 4742031-8 (Version None)
Quarter: 2005Q3

REPORT INFORMATION
  Report Type: 
  Country: None (occurrence: None)
  Receive Date: 20050727
  Receipt Date: 20041209
  Transmission Date: 20060218
  Serious: Yes (Death)
  Sender: FDA-Public Use
  Company Number: IGH/04/12/LIT

PATIENT
  Sex: Female

DRUGS (3)
  1. IMMUNE GLOBULIN INTRAVENOUS (HUMAN) (IMMUNOGLOBULIN HUMAN NORMAL) [Suspect]
     Indication: SEVERE ACUTE RESPIRATORY SYNDROME
     Dosage: I.V.
     Route: 042
  2. RIBAVARIN (RIBAVIRIN) [Concomitant]
  3. LMWH (HEPARIN) [Concomitant]

REACTIONS (3)
  - CEREBRAL INFARCTION [None]
  - DIABETES INSIPIDUS [None]
  - HYPOTENSION [None]
